FAERS Safety Report 12358539 (Version 2)
Quarter: 2016Q2

REPORT INFORMATION
  Report Type: Spontaneous
  Country: KR (occurrence: KR)
  Receive Date: 20160512
  Receipt Date: 20160616
  Transmission Date: 20160815
  Serious: Yes (Death, Other)
  Sender: FDA-Public Use
  Company Number: KR-SA-2016SA071204

PATIENT

DRUGS (1)
  1. CAPRELSA [Suspect]
     Active Substance: VANDETANIB
     Indication: MEDULLARY THYROID CANCER
     Route: 048
     Dates: start: 20151120

REACTIONS (6)
  - Asthenia [Not Recovered/Not Resolved]
  - Condition aggravated [Fatal]
  - Brain cancer metastatic [Unknown]
  - Liver function test increased [Not Recovered/Not Resolved]
  - Metastases to liver [Unknown]
  - Medullary thyroid cancer [Fatal]

NARRATIVE: CASE EVENT DATE: 20160120
